FAERS Safety Report 9777535 (Version 2)
Quarter: 2014Q1

REPORT INFORMATION
  Report Type: Report from Study
  Country: CA (occurrence: CA)
  Receive Date: 20131222
  Receipt Date: 20140123
  Transmission Date: 20141002
  Serious: Yes (Hospitalization)
  Sender: FDA-Public Use
  Company Number: PHHY2013CA149767

PATIENT
  Sex: Male

DRUGS (3)
  1. CLOZARIL [Suspect]
     Indication: SCHIZOPHRENIA
     Dosage: 125 MG, BID
     Route: 048
     Dates: start: 20010228
  2. CLOZARIL [Suspect]
     Dosage: 125 MG, BID
     Route: 048
  3. ESCITALOPRAM [Concomitant]
     Dosage: 5 MG, DAILY
     Route: 048

REACTIONS (6)
  - Infection [Unknown]
  - Cellulitis [Recovered/Resolved]
  - Fall [Recovered/Resolved]
  - Head injury [Unknown]
  - Gait disturbance [Unknown]
  - Abnormal behaviour [Unknown]
